FAERS Safety Report 9090708 (Version 1)
Quarter: 2013Q1

REPORT INFORMATION
  Report Type: Spontaneous
  Country: US (occurrence: US)
  Receive Date: 20130131
  Receipt Date: 20130131
  Transmission Date: 20140127
  Serious: No
  Sender: FDA-Public Use
  Company Number: US-ABBOTT-12P-163-1021774-00

PATIENT
  Sex: Male
  Weight: 102.15 kg

DRUGS (6)
  1. HUMIRA [Suspect]
     Indication: PSORIASIS
     Dates: start: 20120727
  2. LISINOPRIL/HCTZ [Concomitant]
     Indication: HYPERTENSION
  3. LOVAZA [Concomitant]
     Indication: BLOOD CHOLESTEROL INCREASED
  4. PRAVASTATIN [Concomitant]
     Indication: BLOOD CHOLESTEROL INCREASED
  5. TRAZODONE [Concomitant]
     Indication: DEPRESSION
  6. ZOPIDEM [Concomitant]
     Indication: INSOMNIA

REACTIONS (2)
  - Drug ineffective [Not Recovered/Not Resolved]
  - Psoriasis [Not Recovered/Not Resolved]
